FAERS Safety Report 19066367 (Version 2)
Quarter: 2021Q3

REPORT INFORMATION
  Report Type: Spontaneous
  Country: US (occurrence: US)
  Receive Date: 20210328
  Receipt Date: 20210910
  Transmission Date: 20211014
  Serious: Yes (Other)
  Sender: FDA-Public Use
  Company Number: US-TEVA-2021-US-1893815

PATIENT
  Age: 9 Year
  Sex: Male

DRUGS (2)
  1. CARBOPLATIN. [Suspect]
     Active Substance: CARBOPLATIN
     Indication: GANGLIOGLIOMA
     Dosage: ADMINISTERED MONTHLY FOR 6 COURSES
     Route: 065
  2. VINCRISTINE [Concomitant]
     Active Substance: VINCRISTINE
     Indication: GANGLIOGLIOMA
     Dosage: ADMINISTERED MONTHLY FOR 6 COURSES
     Route: 065

REACTIONS (1)
  - Drug hypersensitivity [Unknown]
